FAERS Safety Report 6651855-1 (Version None)
Quarter: 2010Q1

REPORT INFORMATION
  Report Type: 
  Country: None (occurrence: None)
  Receive Date: 20100325
  Receipt Date: 20100312
  Transmission Date: 20100710
  Serious: Yes (Disabling, Other)
  Sender: FDA-Public Use
  Company Number: PHHY2010JP12925

PATIENT
  Age: 60 Year
  Sex: Male

DRUGS (3)
  1. NEORAL [Suspect]
     Indication: CORNEAL TRANSPLANT
     Dosage: 150 MG/DAY
     Route: 048
     Dates: start: 19840101, end: 20060101
  2. PREDNISOLONE [Concomitant]
     Indication: KERATOPLASTY
     Dosage: 5 MG, UNK
     Route: 048
     Dates: start: 19840101
  3. PREDNISOLONE [Concomitant]
     Indication: CORNEAL TRANSPLANT

REACTIONS (3)
  - DIABETES MELLITUS [None]
  - ENCEPHALITIS HERPES [None]
  - HERPES SIMPLEX OPHTHALMIC [None]
